FAERS Safety Report 21416632 (Version 1)
Quarter: 2022Q4

REPORT INFORMATION
  Report Type: Spontaneous
  Country: US (occurrence: US)
  Receive Date: 20221006
  Receipt Date: 20221006
  Transmission Date: 20230112
  Serious: No
  Sender: FDA-Public Use
  Company Number: US-ALLERGAN-2222026US

PATIENT
  Sex: Male

DRUGS (2)
  1. VRAYLAR [Suspect]
     Active Substance: CARIPRAZINE
     Indication: Attention deficit hyperactivity disorder
     Dosage: 1.5 MG
  2. VRAYLAR [Suspect]
     Active Substance: CARIPRAZINE
     Indication: Anxiety

REACTIONS (3)
  - Off label use [Unknown]
  - Somnolence [Unknown]
  - Fatigue [Unknown]
